FAERS Safety Report 9126704 (Version 1)
Quarter: 2013Q1

REPORT INFORMATION
  Report Type: Spontaneous
  Country: US (occurrence: US)
  Receive Date: 20130122
  Receipt Date: 20130122
  Transmission Date: 20140127
  Serious: Yes (Other)
  Sender: FDA-Public Use
  Company Number: US-RB-048683-13

PATIENT
  Age: 48 Year
  Sex: Female

DRUGS (2)
  1. MUCINEX D [Suspect]
     Indication: PRODUCT USED FOR UNKNOWN INDICATION
     Dosage: TOOK 11 TABLETS AT ONCE
     Route: 048
     Dates: start: 20130109
  2. MUCINEX D [Suspect]

REACTIONS (3)
  - Feeling abnormal [Not Recovered/Not Resolved]
  - Hallucination [Not Recovered/Not Resolved]
  - Accidental overdose [Not Recovered/Not Resolved]
